FAERS Safety Report 21196306 (Version 1)
Quarter: 2022Q3

REPORT INFORMATION
  Report Type: Spontaneous
  Country: TR (occurrence: TR)
  Receive Date: 20220810
  Receipt Date: 20220810
  Transmission Date: 20221027
  Serious: Yes (Other)
  Sender: FDA-Public Use
  Company Number: TR-002147023-NVSC2022TR179497

PATIENT

DRUGS (3)
  1. CATAFLAM [Suspect]
     Active Substance: DICLOFENAC POTASSIUM
     Indication: Hernia pain
     Dosage: 2 DF, QD
     Route: 048
  2. GERALGINE PLUS [Concomitant]
     Indication: Product used for unknown indication
     Dosage: UNK
     Route: 065
  3. NOVALGIN (METAMIZOLE SODIUM) [Concomitant]
     Active Substance: METAMIZOLE SODIUM
     Indication: Product used for unknown indication
     Dosage: UNK
     Route: 065

REACTIONS (6)
  - Asphyxia [Unknown]
  - Dry mouth [Unknown]
  - Palpitations [Unknown]
  - Pyrexia [Unknown]
  - Respiratory disorder [Unknown]
  - Sleep disorder [Unknown]
